FAERS Safety Report 15534867 (Version 1)
Quarter: 2018Q4

REPORT INFORMATION
  Report Type: Spontaneous
  Country: GB (occurrence: GB)
  Receive Date: 20181022
  Receipt Date: 20181022
  Transmission Date: 20190205
  Serious: Yes (Life-Threatening, Hospitalization, Other)
  Sender: FDA-Public Use
  Company Number: GB-TEVA-2018-GB-966722

PATIENT
  Age: 36 Year
  Sex: Male

DRUGS (1)
  1. IBUPROFEN. [Suspect]
     Active Substance: IBUPROFEN
     Indication: ARTHRALGIA
     Dosage: TAKEN BETWEEN 10-30 TABLETS PER DAY FOR THE LAST 3 WEEKS
     Route: 048

REACTIONS (2)
  - Accidental overdose [Unknown]
  - Acute kidney injury [Not Recovered/Not Resolved]
